FAERS Safety Report 16721379 (Version 1)
Quarter: 2019Q3

REPORT INFORMATION
  Report Type: Spontaneous
  Country: NL (occurrence: NL)
  Receive Date: 20190820
  Receipt Date: 20190820
  Transmission Date: 20191005
  Serious: Yes (Death, Other)
  Sender: FDA-Public Use
  Company Number: NL-JNJFOC-20190522691

PATIENT
  Age: 45 Year
  Sex: Male

DRUGS (3)
  1. MIDAZOLAM [Concomitant]
     Active Substance: MIDAZOLAM HYDROCHLORIDE
     Indication: PRODUCT USED FOR UNKNOWN INDICATION
     Dosage: 5 MG/ML
     Route: 042
  2. MORFINE [Concomitant]
     Active Substance: MORPHINE
     Indication: SEDATION
     Dosage: 20 MG/ML
     Route: 042
  3. HALDOL DECANOAS [Suspect]
     Active Substance: HALOPERIDOL DECANOATE
     Indication: FEELING OF RELAXATION
     Dosage: HALDOL DECANOAAT 50 MG/ML
     Route: 042

REACTIONS (5)
  - Product administration error [Unknown]
  - Death [Fatal]
  - Product use in unapproved indication [Unknown]
  - Wrong product administered [Unknown]
  - Off label use [Unknown]

NARRATIVE: CASE EVENT DATE: 20190515
